FAERS Safety Report 24815793 (Version 1)
Quarter: 2025Q1

REPORT INFORMATION
  Report Type: Spontaneous
  Country: FR (occurrence: FR)
  Receive Date: 20250107
  Receipt Date: 20250107
  Transmission Date: 20250409
  Serious: Yes (Hospitalization)
  Sender: AMERICAN REGENT
  Company Number: FR-AMERICAN REGENT INC-2024004940

PATIENT
  Age: 28 Year
  Sex: Female
  Weight: 184 kg

DRUGS (2)
  1. FERINJECT [Suspect]
     Active Substance: FERRIC CARBOXYMALTOSE
     Indication: Iron deficiency anaemia
     Route: 042
     Dates: start: 20240905, end: 20240905
  2. CEFTAZIDIME [Suspect]
     Active Substance: CEFTAZIDIME
     Indication: Pseudomonal bacteraemia
     Route: 042
     Dates: start: 20240904, end: 20240910

REACTIONS (2)
  - Deep vein thrombosis [Recovering/Resolving]
  - Superficial vein thrombosis [Recovering/Resolving]

NARRATIVE: CASE EVENT DATE: 20240906
